FAERS Safety Report 10469071 (Version 3)
Quarter: 2014Q4

REPORT INFORMATION
  Report Type: Report from Study
  Country: AU (occurrence: AU)
  Receive Date: 20140923
  Receipt Date: 20141103
  Transmission Date: 20150528
  Serious: Yes (Other)
  Sender: FDA-Public Use
  Company Number: AU-BRISTOL-MYERS SQUIBB COMPANY-21376876

PATIENT
  Age: 22 Year
  Sex: Female

DRUGS (1)
  1. SPRYCEL [Suspect]
     Active Substance: DASATINIB
     Indication: CHRONIC MYELOID LEUKAEMIA
     Route: 048
     Dates: start: 20140201

REACTIONS (5)
  - Weight increased [Not Recovered/Not Resolved]
  - Chest pain [None]
  - Dyspnoea [None]
  - Back disorder [Not Recovered/Not Resolved]
  - Cough [None]
